FAERS Safety Report 8795199 (Version 2)
Quarter: 2015Q1

REPORT INFORMATION
  Report Type: Report from Study
  Country: US (occurrence: US)
  Receive Date: 20120918
  Receipt Date: 20150316
  Transmission Date: 20150721
  Serious: Yes (Death)
  Sender: FDA-Public Use
  Company Number: US-ROCHE-1124612

PATIENT
  Sex: Male

DRUGS (29)
  1. AVASTIN [Suspect]
     Active Substance: BEVACIZUMAB
     Route: 042
     Dates: start: 20081013
  2. AVASTIN [Suspect]
     Active Substance: BEVACIZUMAB
     Route: 042
     Dates: start: 20081027
  3. ATROPINE [Concomitant]
     Active Substance: ATROPINE
     Route: 065
     Dates: start: 20081013
  4. ANZEMET [Concomitant]
     Active Substance: DOLASETRON MESYLATE
     Route: 065
     Dates: start: 20080929
  5. AVASTIN [Suspect]
     Active Substance: BEVACIZUMAB
     Indication: LUNG NEOPLASM MALIGNANT
     Route: 042
  6. ATROPINE [Concomitant]
     Active Substance: ATROPINE
     Route: 065
     Dates: start: 20081111
  7. ATROPINE [Concomitant]
     Active Substance: ATROPINE
     Route: 042
     Dates: start: 20080929
  8. AVASTIN [Suspect]
     Active Substance: BEVACIZUMAB
     Route: 042
     Dates: start: 20080926
  9. ANZEMET [Concomitant]
     Active Substance: DOLASETRON MESYLATE
     Route: 065
     Dates: start: 20081013
  10. AVASTIN [Suspect]
     Active Substance: BEVACIZUMAB
     Indication: BRAIN NEOPLASM MALIGNANT
     Route: 042
     Dates: start: 20081223
  11. CPT-11 [Concomitant]
     Active Substance: IRINOTECAN
     Route: 065
     Dates: start: 20081111
  12. ATROPINE [Concomitant]
     Active Substance: ATROPINE
     Route: 042
     Dates: start: 20081027
  13. ATROPINE [Concomitant]
     Active Substance: ATROPINE
     Route: 065
     Dates: start: 20080929
  14. AVASTIN [Suspect]
     Active Substance: BEVACIZUMAB
     Route: 042
     Dates: start: 20081204
  15. CPT-11 [Concomitant]
     Active Substance: IRINOTECAN
     Route: 065
     Dates: start: 20081027
  16. CPT-11 [Concomitant]
     Active Substance: IRINOTECAN
     Route: 065
     Dates: start: 20080929
  17. ANZEMET [Concomitant]
     Active Substance: DOLASETRON MESYLATE
     Route: 065
     Dates: start: 20081027
  18. ANZEMET [Concomitant]
     Active Substance: DOLASETRON MESYLATE
     Route: 065
     Dates: start: 20080929
  19. CPT-11 [Concomitant]
     Active Substance: IRINOTECAN
     Route: 065
     Dates: start: 20080929
  20. ATROPINE [Concomitant]
     Active Substance: ATROPINE
     Route: 042
     Dates: start: 20081223
  21. AVASTIN [Suspect]
     Active Substance: BEVACIZUMAB
     Route: 042
     Dates: start: 20081111
  22. ATROPINE [Concomitant]
     Active Substance: ATROPINE
     Route: 042
     Dates: start: 20081204
  23. ANZEMET [Concomitant]
     Active Substance: DOLASETRON MESYLATE
     Route: 065
     Dates: start: 20081223
  24. AVASTIN [Suspect]
     Active Substance: BEVACIZUMAB
     Route: 042
     Dates: start: 20080929
  25. CPT-11 [Concomitant]
     Active Substance: IRINOTECAN
     Route: 065
     Dates: start: 20081204
  26. CPT-11 [Concomitant]
     Active Substance: IRINOTECAN
     Route: 065
     Dates: start: 20081013
  27. CPT-11 [Concomitant]
     Active Substance: IRINOTECAN
     Route: 065
     Dates: start: 20081223
  28. ANZEMET [Concomitant]
     Active Substance: DOLASETRON MESYLATE
     Route: 065
     Dates: start: 20081204
  29. ANZEMET [Concomitant]
     Active Substance: DOLASETRON MESYLATE
     Route: 065
     Dates: start: 20081111

REACTIONS (4)
  - Monoplegia [Unknown]
  - Nausea [Unknown]
  - Vomiting [Unknown]
  - Death [Fatal]
